FAERS Safety Report 7376170-2 (Version None)
Quarter: 2011Q1

REPORT INFORMATION
  Report Type: 
  Country: None (occurrence: None)
  Receive Date: 20110325
  Receipt Date: 20110318
  Transmission Date: 20110831
  Serious: Yes (Hospitalization)
  Sender: FDA-Public Use
  Company Number: DE-CEPHALON-2011001390

PATIENT
  Sex: Male
  Weight: 78 kg

DRUGS (2)
  1. DEXAMETHASONE [Concomitant]
     Dates: start: 20100624, end: 20101031
  2. BENDAMUSTINE HCL [Suspect]
     Indication: MULTIPLE MYELOMA
     Route: 042
     Dates: start: 20100624, end: 20101031

REACTIONS (1)
  - ERYSIPELAS [None]
